FAERS Safety Report 12466520 (Version 9)
Quarter: 2018Q3

REPORT INFORMATION
  Report Type: Report from Study
  Country: CA (occurrence: CA)
  Receive Date: 20160615
  Receipt Date: 20180924
  Transmission Date: 20181010
  Serious: Yes (Other)
  Sender: FDA-Public Use
  Company Number: CA-ROCHE-1743001

PATIENT
  Age: 24 Year
  Sex: Female
  Weight: 51 kg

DRUGS (13)
  1. TOPIRAMATE. [Suspect]
     Active Substance: TOPIRAMATE
     Indication: HEADACHE
     Route: 065
     Dates: end: 20160603
  2. METOPROLOL. [Concomitant]
     Active Substance: METOPROLOL
     Route: 065
  3. FOLIC ACID. [Concomitant]
     Active Substance: FOLIC ACID
  4. ACTEMRA [Suspect]
     Active Substance: TOCILIZUMAB
     Indication: VASCULITIS
     Route: 042
     Dates: start: 20160414, end: 20160915
  5. ADVIL [Suspect]
     Active Substance: IBUPROFEN
     Indication: PRODUCT USED FOR UNKNOWN INDICATION
     Route: 065
  6. METOPROLOL. [Concomitant]
     Active Substance: METOPROLOL
     Indication: HYPERTENSION
     Route: 065
  7. COVERSYL [Concomitant]
     Active Substance: PERINDOPRIL
     Indication: HYPERTENSION
  8. AMLODIPINE [Concomitant]
     Active Substance: AMLODIPINE BESYLATE
     Indication: HYPERTENSION
     Route: 065
  9. PREDNISONE. [Concomitant]
     Active Substance: PREDNISONE
  10. ASPIRIN. [Concomitant]
     Active Substance: ASPIRIN
  11. ACTEMRA [Suspect]
     Active Substance: TOCILIZUMAB
     Indication: TAKAYASU^S ARTERITIS
  12. ACETYLSALICYLIC ACID [Suspect]
     Active Substance: ASPIRIN
     Indication: PRODUCT USED FOR UNKNOWN INDICATION
     Route: 065
  13. PANTOLOC [Concomitant]
     Active Substance: PANTOPRAZOLE SODIUM

REACTIONS (24)
  - Infusion related reaction [Recovering/Resolving]
  - Hypersensitivity [Unknown]
  - Blood pressure fluctuation [Unknown]
  - Vomiting [Unknown]
  - Hypotension [Unknown]
  - Blood pressure diastolic increased [Unknown]
  - Diarrhoea haemorrhagic [Recovered/Resolved]
  - Abdominal pain [Recovering/Resolving]
  - Nausea [Recovering/Resolving]
  - Pruritus [Not Recovered/Not Resolved]
  - Vasculitis [Not Recovered/Not Resolved]
  - Rectal haemorrhage [Unknown]
  - Blood pressure increased [Unknown]
  - Swollen tongue [Recovered/Resolved]
  - Abdominal pain upper [Not Recovered/Not Resolved]
  - Swelling face [Not Recovered/Not Resolved]
  - Neck pain [Not Recovered/Not Resolved]
  - Throat tightness [Recovering/Resolving]
  - Diarrhoea [Recovered/Resolved]
  - Lip swelling [Recovered/Resolved]
  - Chills [Unknown]
  - Musculoskeletal pain [Not Recovered/Not Resolved]
  - Weight decreased [Unknown]
  - Breast conserving surgery [Unknown]

NARRATIVE: CASE EVENT DATE: 20160414
